FAERS Safety Report 4268735-1 (Version None)
Quarter: 2004Q1

REPORT INFORMATION
  Report Type: 
  Country: None (occurrence: None)
  Receive Date: 20040112
  Receipt Date: 20040112
  Transmission Date: 20041129
  Serious: Yes (Life-Threatening)
  Sender: FDA-Public Use
  Company Number: None

PATIENT
  Age: 46 Year
  Sex: Female

DRUGS (4)
  1. ENBREL [Suspect]
     Indication: POLYARTHRITIS
     Dates: start: 20030501, end: 20030801
  2. ARAVA [Suspect]
     Indication: PSORIASIS
     Dates: start: 20000101
  3. PLAQUENIL [Concomitant]
  4. ALEVE [Concomitant]

REACTIONS (2)
  - LUNG ABSCESS [None]
  - SPONDYLITIS [None]
